FAERS Safety Report 6229679-9 (Version None)
Quarter: 2009Q2

REPORT INFORMATION
  Report Type: 
  Country: None (occurrence: None)
  Receive Date: 20090610
  Receipt Date: 20081003
  Transmission Date: 20091009
  Serious: Yes (Other)
  Sender: FDA-Public Use
  Company Number: IPS_01291_2008

PATIENT
  Sex: Female

DRUGS (1)
  1. APOKYN [Suspect]
     Indication: PARKINSON'S DISEASE
     Dosage: 0.4 ML, FREQUENCY UNKNOWN SUBCUTANEOUS
     Route: 058

REACTIONS (1)
  - LOSS OF CONSCIOUSNESS [None]
